FAERS Safety Report 9309598 (Version 1)
Quarter: 2013Q2

REPORT INFORMATION
  Report Type: Spontaneous
  Country: US (occurrence: US)
  Receive Date: 20130525
  Receipt Date: 20130525
  Transmission Date: 20140414
  Serious: No
  Sender: FDA-Public Use
  Company Number: US-BRISTOL-MYERS SQUIBB COMPANY-17483082

PATIENT
  Age: 63 Year
  Sex: Female
  Weight: 99.77 kg

DRUGS (3)
  1. BYDUREON [Suspect]
     Indication: TYPE 2 DIABETES MELLITUS
     Dosage: BYDUREON EXENATIDE LONG ACTING RELEASE 2MG
     Route: 058
     Dates: start: 201209, end: 20130217
  2. METFORMIN [Concomitant]
     Indication: TYPE 2 DIABETES MELLITUS
     Route: 048
  3. GLIMEPIRIDE [Concomitant]
     Indication: TYPE 2 DIABETES MELLITUS
     Route: 048

REACTIONS (3)
  - Lipase increased [Unknown]
  - Influenza like illness [Unknown]
  - Nausea [Unknown]
